FAERS Safety Report 4907358-5 (Version None)
Quarter: 2006Q1

REPORT INFORMATION
  Report Type: 
  Country: None (occurrence: None)
  Receive Date: 20060208
  Receipt Date: 20060208
  Transmission Date: 20060701
  Serious: Yes (Hospitalization)
  Sender: FDA-Public Use
  Company Number: None

PATIENT
  Age: 56 Year
  Sex: Male
  Weight: 88.4514 kg

DRUGS (3)
  1. DILAUDID [Suspect]
     Indication: BACK PAIN
     Dates: start: 20051116, end: 20060116
  2. DILAUDID [Suspect]
     Indication: NECK PAIN
     Dates: start: 20051116, end: 20060116
  3. DILAUDID [Suspect]
     Indication: ROAD TRAFFIC ACCIDENT
     Dates: start: 20051116, end: 20060116

REACTIONS (17)
  - BODY DYSMORPHIC DISORDER [None]
  - CHILLS [None]
  - CONFUSIONAL STATE [None]
  - COUGH [None]
  - DERMATOMYOSITIS [None]
  - DISORIENTATION [None]
  - DYSPNOEA [None]
  - FALL [None]
  - HALLUCINATION [None]
  - HYPERHIDROSIS [None]
  - LOSS OF CONSCIOUSNESS [None]
  - MENTAL STATUS CHANGES [None]
  - OVERDOSE [None]
  - PLEURITIC PAIN [None]
  - PYREXIA [None]
  - RHABDOMYOLYSIS [None]
  - SPUTUM DISCOLOURED [None]
